FAERS Safety Report 5176721-2 (Version None)
Quarter: 2006Q4

REPORT INFORMATION
  Report Type: 
  Country: None (occurrence: None)
  Receive Date: 20061218
  Receipt Date: 20061206
  Transmission Date: 20070319
  Serious: Yes (Other)
  Sender: FDA-Public Use
  Company Number: TR-AVENTIS-200622602GDDC

PATIENT
  Sex: Male

DRUGS (1)
  1. FLAGYL [Suspect]

REACTIONS (1)
  - DEAFNESS [None]
